FAERS Safety Report 24889546 (Version 1)
Quarter: 2025Q1

REPORT INFORMATION
  Report Type: Report from Study
  Country: US (occurrence: US)
  Receive Date: 20250127
  Receipt Date: 20250127
  Transmission Date: 20250409
  Serious: Yes (Other)
  Sender: ABBVIE
  Company Number: US-ABBVIE-6098510

PATIENT
  Age: 61 Year
  Sex: Female

DRUGS (1)
  1. VENETOCLAX [Suspect]
     Active Substance: VENETOCLAX
     Indication: Acute myeloid leukaemia recurrent
     Dosage: TAKE 1 TABLET BY MOUTH DAILY WITH TWO 10MG TABLETS FOR A TOTAL DAILY DOSE OF 70MG ONCE DAILY?FORM...
     Route: 048

REACTIONS (4)
  - Bone marrow transplant [Unknown]
  - Malaise [Unknown]
  - Illness [Unknown]
  - Diarrhoea [Recovering/Resolving]

NARRATIVE: CASE EVENT DATE: 20250101
